FAERS Safety Report 20488161 (Version 1)
Quarter: 2022Q1

REPORT INFORMATION
  Report Type: Report from Study
  Country: GT (occurrence: GT)
  Receive Date: 20220218
  Receipt Date: 20220218
  Transmission Date: 20220423
  Serious: Yes (Hospitalization, Other)
  Sender: FDA-Public Use
  Company Number: GT-NOVARTISPH-NVSC2022GT011963

PATIENT
  Sex: Male

DRUGS (3)
  1. EXFORGE [Suspect]
     Active Substance: AMLODIPINE BESYLATE\VALSARTAN
     Indication: Blood pressure measurement
     Dosage: UNK (STRENGTH 5/320 MG AND 10/320 MG. STARTED APPROXIMATELY 2 YEARS AGO)
     Route: 065
  2. EXFORGE [Suspect]
     Active Substance: AMLODIPINE BESYLATE\VALSARTAN
     Dosage: UNK, QD (10/320 MG)
     Route: 048
     Dates: start: 202112
  3. METFORMIN HYDROCHLORIDE\VILDAGLIPTIN [Suspect]
     Active Substance: METFORMIN HYDROCHLORIDE\VILDAGLIPTIN
     Indication: Diabetes mellitus
     Dosage: 2 DOSAGE FORM, BID ( STARTED 5 YEARS AGO APPROXIMATELY)
     Route: 048

REACTIONS (8)
  - Facial paralysis [Recovered/Resolved]
  - Aphasia [Recovering/Resolving]
  - Visual impairment [Recovering/Resolving]
  - Dental discomfort [Unknown]
  - Nerve injury [Not Recovered/Not Resolved]
  - Insomnia [Not Recovered/Not Resolved]
  - Fluid retention [Not Recovered/Not Resolved]
  - Incorrect dose administered [Unknown]
